FAERS Safety Report 4541796-8 (Version None)
Quarter: 2004Q4

REPORT INFORMATION
  Report Type: 
  Country: None (occurrence: None)
  Receive Date: 20041230
  Receipt Date: 20040629
  Transmission Date: 20050328
  Serious: Yes (Life-Threatening)
  Sender: FDA-Public Use
  Company Number: 200412231JP

PATIENT
  Age: 72 Year
  Sex: Female
  Weight: 53.2 kg

DRUGS (12)
  1. LASIX [Suspect]
     Dosage: DOSE: 1/2A
     Route: 042
     Dates: start: 20040607, end: 20040607
  2. ARICEPT [Concomitant]
     Indication: DEMENTIA
     Route: 048
  3. GLIMICRON [Concomitant]
     Indication: DIABETES MELLITUS
     Route: 048
  4. PANTOSIN [Concomitant]
     Indication: DEPRESSION
     Route: 048
  5. ANAFRANIL [Concomitant]
     Indication: DEPRESSION
     Route: 048
  6. HALOPERIDOL [Concomitant]
     Indication: DEPRESSION
     Route: 048
  7. DEPAS [Concomitant]
     Indication: DEPRESSION
     Route: 048
  8. AKINETON [Concomitant]
     Indication: DEPRESSION
     Route: 048
     Dates: start: 20040602
  9. BUFFERIN [Concomitant]
     Indication: CARDIAC FAILURE
     Route: 048
     Dates: start: 20040608
  10. RENIVEZE                                /JPN/ [Concomitant]
     Indication: THROMBOSIS PROPHYLAXIS
     Dates: start: 20040608, end: 20040629
  11. FLUITRAN [Concomitant]
     Indication: POLYURIA
     Dates: start: 20040611
  12. ALDACTONE-A [Concomitant]
     Indication: POLYURIA
     Dates: start: 20040614, end: 20040629

REACTIONS (7)
  - ANAPHYLACTIC SHOCK [None]
  - CARDIAC FAILURE [None]
  - DRUG ERUPTION [None]
  - DYSPNOEA [None]
  - PNEUMONIA MYCOPLASMAL [None]
  - RASH [None]
  - STRIDOR [None]
